FAERS Safety Report 4300906-8 (Version None)
Quarter: 2004Q1

REPORT INFORMATION
  Report Type: 
  Country: None (occurrence: None)
  Receive Date: 20040218
  Receipt Date: 20031112
  Transmission Date: 20041129
  Serious: No
  Sender: FDA-Public Use
  Company Number: 2003-10-1730

PATIENT
  Age: 40 Year
  Sex: Female
  Weight: 76.6579 kg

DRUGS (5)
  1. PEG-INTRON [Suspect]
     Indication: HEPATITIS C
     Dosage: 120 MCG QWK
     Dates: start: 20030524, end: 20031005
  2. REBETOL [Suspect]
     Indication: HEPATITIS C
     Dosage: 1000 MG QD ORAL
     Route: 048
     Dates: start: 20030524, end: 20031005
  3. XANAX [Concomitant]
  4. TOPROL-XL [Concomitant]
  5. MOTRIN [Concomitant]

REACTIONS (3)
  - INJECTION SITE PAIN [None]
  - NAUSEA [None]
  - PAIN IN EXTREMITY [None]
